FAERS Safety Report 18781605 (Version 1)
Quarter: 2021Q1

REPORT INFORMATION
  Report Type: Spontaneous
  Country: CA (occurrence: CA)
  Receive Date: 20210125
  Receipt Date: 20210125
  Transmission Date: 20210419
  Serious: Yes (Other)
  Sender: FDA-Public Use
  Company Number: CA-SAMSUNG BIOEPIS-SB-2021-01257

PATIENT
  Age: 25 Year
  Sex: Female

DRUGS (1)
  1. INFLIXIMAB [Suspect]
     Active Substance: INFLIXIMAB
     Indication: CROHN^S DISEASE
     Route: 042

REACTIONS (7)
  - Inappropriate schedule of product administration [Unknown]
  - Off label use [Unknown]
  - Nasopharyngitis [Unknown]
  - Ingrown hair [Unknown]
  - Condition aggravated [Unknown]
  - Malaise [Unknown]
  - Abscess [Unknown]
